FAERS Safety Report 5887320-9 (Version None)
Quarter: 2008Q3

REPORT INFORMATION
  Report Type: 
  Country: None (occurrence: None)
  Receive Date: 20080915
  Receipt Date: 20080903
  Transmission Date: 20090109
  Serious: Yes (Other)
  Sender: FDA-Public Use
  Company Number: 237575J08USA

PATIENT
  Age: 45 Year
  Sex: Female
  Weight: 90.7194 kg

DRUGS (7)
  1. REBIF [Suspect]
     Indication: MULTIPLE SCLEROSIS
     Dosage: 44 MCG, 3 IN 1 WEEKS; 22 MCG, 3 IN 1 WEEKS, SUBCUTANEOUS
     Route: 058
     Dates: start: 20080401, end: 20080807
  2. REBIF [Suspect]
     Indication: MULTIPLE SCLEROSIS
     Dosage: 44 MCG, 3 IN 1 WEEKS; 22 MCG, 3 IN 1 WEEKS, SUBCUTANEOUS
     Route: 058
     Dates: start: 20080901
  3. NORVASC [Concomitant]
  4. EFFEXOR XR [Concomitant]
  5. ZOCOR (ZOCOR CARDIO ASS) [Concomitant]
  6. RITALIN [Concomitant]
  7. MOTRIN [Concomitant]

REACTIONS (10)
  - CONVULSION [None]
  - DYSKINESIA [None]
  - FALL [None]
  - FATIGUE [None]
  - FOAMING AT MOUTH [None]
  - HEAD INJURY [None]
  - LOSS OF CONSCIOUSNESS [None]
  - NAUSEA [None]
  - SKIN LACERATION [None]
  - STARING [None]
